FAERS Safety Report 21076473 (Version 2)
Quarter: 2022Q3

REPORT INFORMATION
  Report Type: Spontaneous
  Country: JP (occurrence: JP)
  Receive Date: 20220713
  Receipt Date: 20220915
  Transmission Date: 20221027
  Serious: No
  Sender: FDA-Public Use
  Company Number: JP-GLAXOSMITHKLINE-JP2022JPN104510

PATIENT

DRUGS (7)
  1. SOTROVIMAB [Suspect]
     Active Substance: SOTROVIMAB
     Indication: COVID-19
     Dosage: 500 MG
     Route: 042
     Dates: start: 20220707, end: 20220707
  2. MONTELUKAST [Suspect]
     Active Substance: MONTELUKAST SODIUM
     Indication: Cough
     Dosage: 10 MG
     Route: 048
     Dates: start: 20220708, end: 20220710
  3. DEQUALINIUM CHLORIDE [Suspect]
     Active Substance: DEQUALINIUM CHLORIDE
     Indication: Oropharyngeal pain
     Dosage: 0.25 TO 1.25 MG
     Route: 048
     Dates: start: 20220708
  4. MAGNESIUM OXIDE [Suspect]
     Active Substance: MAGNESIUM OXIDE
     Indication: Constipation
     Dosage: 250 MG TO 500 MG
     Route: 048
     Dates: start: 20220708
  5. CALONAL [Suspect]
     Active Substance: ACETAMINOPHEN
     Indication: Oropharyngeal pain
     Dosage: 400 MG TO 1200 MG
     Route: 048
     Dates: start: 20220708
  6. FEXOFENADINE [Suspect]
     Active Substance: FEXOFENADINE HYDROCHLORIDE
     Indication: Cough
     Dosage: 120 MG
     Route: 048
     Dates: start: 20220708, end: 20220710
  7. DEXTROMETHORPHAN [Suspect]
     Active Substance: DEXTROMETHORPHAN
     Indication: Cough
     Dosage: 45 MG
     Route: 048
     Dates: start: 20220708, end: 20220708

REACTIONS (1)
  - Exposure during pregnancy [Unknown]
